FAERS Safety Report 17489262 (Version 1)
Quarter: 2020Q1

REPORT INFORMATION
  Report Type: Report from Study
  Country: US (occurrence: US)
  Receive Date: 20200303
  Receipt Date: 20200303
  Transmission Date: 20200409
  Serious: Yes (Other)
  Sender: FDA-Public Use
  Company Number: US-EISAI MEDICAL RESEARCH-EC-2019-058848

PATIENT
  Age: 77 Year
  Sex: Male
  Weight: 122 kg

DRUGS (2)
  1. LENVIMA [Suspect]
     Active Substance: LENVATINIB
     Indication: CHOLANGIOCARCINOMA
     Dosage: 12MG ONCE DAILY FROM MONDAY THROUGH FRIDAY
     Route: 048
     Dates: start: 20190625, end: 20190728
  2. LENVIMA [Suspect]
     Active Substance: LENVATINIB
     Dosage: 12MG ONCE DAILY FROM MONDAY THROUGH THURSDAY
     Route: 048
     Dates: start: 20190729, end: 2020

REACTIONS (15)
  - Pulmonary embolism [Not Recovered/Not Resolved]
  - Muscular weakness [Not Recovered/Not Resolved]
  - Oedema peripheral [Not Recovered/Not Resolved]
  - Pleural effusion [Not Recovered/Not Resolved]
  - Weight increased [Unknown]
  - Epistaxis [Recovered/Resolved]
  - Taste disorder [Not Recovered/Not Resolved]
  - Tachycardia [Recovered/Resolved]
  - Hypotension [Recovering/Resolving]
  - Fatigue [Recovering/Resolving]
  - Heart rate increased [Not Recovered/Not Resolved]
  - Skin ulcer [Recovering/Resolving]
  - Dysphonia [Not Recovered/Not Resolved]
  - Headache [Not Recovered/Not Resolved]
  - Product use issue [Not Recovered/Not Resolved]

NARRATIVE: CASE EVENT DATE: 2019
